FAERS Safety Report 5393836-4 (Version None)
Quarter: 2007Q3

REPORT INFORMATION
  Report Type: 
  Country: None (occurrence: None)
  Receive Date: 20070719
  Receipt Date: 20070719
  Transmission Date: 20080115
  Serious: Yes (Other)
  Sender: FDA-Public Use
  Company Number: None

PATIENT
  Sex: Female
  Weight: 104.7809 kg

DRUGS (1)
  1. TRASYLOL [Suspect]
     Indication: HAEMOSTASIS
     Dates: start: 20070619, end: 20070619

REACTIONS (1)
  - POSTOPERATIVE RENAL FAILURE [None]
